FAERS Safety Report 9134904 (Version 1)
Quarter: 2013Q1

REPORT INFORMATION
  Report Type: Spontaneous
  Country: US (occurrence: US)
  Receive Date: 20130304
  Receipt Date: 20130304
  Transmission Date: 20140127
  Serious: Yes (Hospitalization, Other)
  Sender: FDA-Public Use
  Company Number: US-PFIZER INC-2013072627

PATIENT
  Age: 58 Year
  Sex: Female
  Weight: 73.47 kg

DRUGS (6)
  1. EFFEXOR XR [Suspect]
     Indication: DEPRESSION
     Dosage: 150 MG, 2X/DAY
     Route: 048
  2. SYNTHROID [Concomitant]
     Dosage: 0.5 UG, 1X/DAY
  3. NEURONTIN [Concomitant]
     Dosage: 400 MG, 3X/DAY
  4. CLONAZEPAM [Concomitant]
     Dosage: 0.5 MG, 2X/DAY
  5. NEXIUM [Concomitant]
     Dosage: 40 MG, 2X/DAY
  6. FLEXERIL [Concomitant]
     Dosage: HALF A TABLET, 1X/DAY AT BED TIME

REACTIONS (3)
  - Incorrect dose administered [Unknown]
  - Malaise [Unknown]
  - Gastric disorder [Unknown]
